FAERS Safety Report 8525853-7 (Version None)
Quarter: 2012Q3

REPORT INFORMATION
  Report Type: 
  Country: None (occurrence: None)
  Receive Date: 20120720
  Receipt Date: 20120716
  Transmission Date: 20120928
  Serious: Yes (Hospitalization)
  Sender: FDA-Public Use
  Company Number: CO-ELI_LILLY_AND_COMPANY-CO201207005389

PATIENT
  Age: 84 Year
  Sex: Female

DRUGS (10)
  1. VITAMIN D [Concomitant]
  2. CALCITONIN SALMON [Concomitant]
  3. METOCLOPRAMIDE [Concomitant]
  4. MEDROL [Concomitant]
  5. VITAMIN D [Concomitant]
  6. CALCIUM + VITAMIN D [Concomitant]
  7. LEVOTHYROXINE SODIUM [Concomitant]
  8. NEBIVOLOL [Concomitant]
  9. FORTEO [Suspect]
     Indication: OSTEOPOROSIS
     Dosage: 20 UG, QD
     Route: 058
     Dates: start: 20120501
  10. OMEPRAZOLE [Concomitant]

REACTIONS (1)
  - DIVERTICULUM INTESTINAL [None]
